FAERS Safety Report 21880451 (Version 3)
Quarter: 2023Q1

REPORT INFORMATION
  Report Type: Spontaneous
  Country: HU (occurrence: HU)
  Receive Date: 20230118
  Receipt Date: 20230127
  Transmission Date: 20230418
  Serious: Yes (Hospitalization, Other)
  Sender: FDA-Public Use
  Company Number: HU-Gedeon Richter Plc.-2022_GR_009816

PATIENT
  Age: 77 Year
  Sex: Female

DRUGS (2)
  1. ATORVASTATIN [Suspect]
     Active Substance: ATORVASTATIN
     Indication: Acute myocardial infarction
     Dosage: UNK
     Route: 065
  2. CLOPIDOGREL [Concomitant]
     Active Substance: CLOPIDOGREL BISULFATE
     Indication: Acute myocardial infarction
     Dosage: UNK
     Route: 065

REACTIONS (5)
  - Bile duct stenosis [Unknown]
  - Acute kidney injury [Unknown]
  - Adenoma benign [Unknown]
  - Biliary obstruction [Unknown]
  - Rhabdomyolysis [Unknown]
